FAERS Safety Report 6074722-3 (Version None)
Quarter: 2009Q1

REPORT INFORMATION
  Report Type: 
  Country: None (occurrence: None)
  Receive Date: 20090212
  Receipt Date: 20090206
  Transmission Date: 20090719
  Serious: Yes (Other)
  Sender: FDA-Public Use
  Company Number: JP-JNJFOC-20090201573

PATIENT
  Age: 81 Year
  Sex: Male

DRUGS (3)
  1. DUROTEP [Suspect]
     Indication: LUNG NEOPLASM MALIGNANT
     Route: 062
  2. MORPHINE [Concomitant]
     Dosage: AS NECESSARY
     Route: 048
  3. OXYCODONE HYDROCHLORIDE [Concomitant]
     Route: 048

REACTIONS (2)
  - CHOKING SENSATION [None]
  - PLEURAL EFFUSION [None]
